FAERS Safety Report 5384957-0 (Version None)
Quarter: 2007Q3

REPORT INFORMATION
  Report Type: 
  Country: None (occurrence: None)
  Receive Date: 20070709
  Receipt Date: 20070619
  Transmission Date: 20080115
  Serious: Yes (Hospitalization)
  Sender: FDA-Public Use
  Company Number: D-07-0047

PATIENT
  Age: 24 Year
  Sex: Male

DRUGS (9)
  1. JANTOVEN [Suspect]
     Indication: ANTICOAGULANT THERAPY
     Dosage: 20 MG, QD, PO
     Route: 048
     Dates: start: 20070618
  2. JANTOVEN [Suspect]
     Indication: ANTICOAGULANT THERAPY
     Dosage: 10 MG, QD, PO
     Route: 048
     Dates: start: 20070617
  3. JANTOVEN [Suspect]
     Indication: ANTICOAGULANT THERAPY
     Dosage: 5 MG, QD, PO
     Route: 048
     Dates: start: 20070615, end: 20070616
  4. LOVENOX [Concomitant]
  5. PEPCID [Concomitant]
  6. VICODIN [Concomitant]
  7. NOVOLIN R [Concomitant]
  8. PHENERGAN HCL [Concomitant]
  9. BACTRIM DS [Concomitant]

REACTIONS (1)
  - INTERNATIONAL NORMALISED RATIO DECREASED [None]
